FAERS Safety Report 14175107 (Version 6)
Quarter: 2017Q4

REPORT INFORMATION
  Report Type: Report from Study
  Country: BR (occurrence: BR)
  Receive Date: 20171109
  Receipt Date: 20171229
  Transmission Date: 20180321
  Serious: Yes (Death, Hospitalization)
  Sender: FDA-Public Use
  Company Number: BR-AMGEN-BRACT2017166133

PATIENT
  Age: 76 Year
  Sex: Female
  Weight: 56 kg

DRUGS (24)
  1. DEXAMETHASONE. [Suspect]
     Active Substance: DEXAMETHASONE
     Dosage: UNK UNK, PER CHEMO REGIM
     Route: 048
     Dates: start: 20171025
  2. FENOTEROL [Concomitant]
     Active Substance: FENOTEROL
     Indication: ASTHMA
     Dosage: 5 GTT, AS NECESSARY
     Route: 055
     Dates: start: 2011
  3. DEXAMETHASONE. [Suspect]
     Active Substance: DEXAMETHASONE
     Indication: PLASMA CELL MYELOMA
     Dosage: 20 MG, PER CHEMO REGIM
     Route: 048
     Dates: start: 20140130
  4. FORMOTEROL [Concomitant]
     Active Substance: FORMOTEROL
     Indication: ASTHMA
     Dosage: 12 MUG, BID
     Route: 055
     Dates: start: 20140912
  5. CEFEPIME [Concomitant]
     Active Substance: CEFEPIME HYDROCHLORIDE
     Indication: SEPSIS
     Dosage: 100 MG- 2 G, AS NECESSARY
     Route: 042
     Dates: start: 20171012, end: 20171101
  6. MAGNESIUM SULFATE. [Concomitant]
     Active Substance: MAGNESIUM SULFATE
     Indication: SUPERIOR VENA CAVA SYNDROME
     Dosage: 1 AMPOULE, AS NECESSARY
     Route: 042
     Dates: start: 20171012
  7. FUROSEMIDE. [Concomitant]
     Active Substance: FUROSEMIDE
     Indication: SUPERIOR VENA CAVA SYNDROME
     Dosage: 1 AMPOULE, AS NECESSARY
     Route: 042
     Dates: start: 20171014
  8. AMLODIPINE [Concomitant]
     Active Substance: AMLODIPINE BESYLATE
     Indication: HYPERTENSION
     Dosage: 5 MG, QD
     Route: 048
     Dates: start: 2012
  9. BUDESONIDE. [Concomitant]
     Active Substance: BUDESONIDE
     Indication: ASTHMA
     Dosage: 400 MUG, BID
     Route: 055
     Dates: start: 20140912
  10. CLAVULIN [Concomitant]
     Active Substance: AMOXICILLIN\CLAVULANIC ACID
     Indication: URINARY TRACT INFECTION
     Dosage: 500 MG, TID
     Route: 048
     Dates: start: 20170905
  11. HYDROCORTISONE. [Concomitant]
     Active Substance: HYDROCORTISONE
     Indication: SUPERIOR VENA CAVA SYNDROME
     Dosage: 500 MG, AS NECESSARY
     Route: 042
     Dates: start: 20171012
  12. MORFIN [Concomitant]
     Active Substance: MORPHINE SULFATE
     Indication: SUPERIOR VENA CAVA SYNDROME
     Dosage: 1 AMPOULE, AS NECESSARY
     Route: 042
     Dates: start: 20171012
  13. CARFILZOMIB [Suspect]
     Active Substance: CARFILZOMIB
     Indication: PLASMA CELL MYELOMA
     Dosage: 20 MG/M2, PER CHEMO REGIM
     Route: 042
     Dates: start: 20140130
  14. WARFARIN [Concomitant]
     Active Substance: WARFARIN
     Indication: SUPERIOR VENA CAVA SYNDROME
     Dosage: 2.5-5 MG, UNK
     Route: 048
     Dates: start: 20170927
  15. ADRENALIN [Concomitant]
     Active Substance: EPINEPHRINE
     Indication: SUPERIOR VENA CAVA SYNDROME
     Dosage: 1 AMPOULE, AS NECESSARY
     Route: 042
     Dates: start: 20171012
  16. OMEPRAZOLE. [Concomitant]
     Active Substance: OMEPRAZOLE
     Indication: ULCER
     Dosage: 20 MG, QD
     Route: 048
     Dates: start: 2011
  17. PARACETAMOL [Concomitant]
     Active Substance: ACETAMINOPHEN
     Indication: HEADACHE
     Dosage: 750 MG, AS NECESSARY
     Route: 048
     Dates: start: 20150217
  18. BRINZOLAMIDE [Concomitant]
     Active Substance: BRINZOLAMIDE
     Indication: CATARACT
     Dosage: 1 GTT, TID
     Route: 031
     Dates: start: 20170315
  19. ENOXAPARIN [Concomitant]
     Active Substance: ENOXAPARIN
     Indication: SUPERIOR VENA CAVA SYNDROME
     Dosage: 60 MG, BID
     Route: 030
     Dates: start: 20170927, end: 20171017
  20. CEFEPIME [Concomitant]
     Active Substance: CEFEPIME HYDROCHLORIDE
     Indication: SUPERIOR VENA CAVA SYNDROME
  21. CARFILZOMIB [Suspect]
     Active Substance: CARFILZOMIB
     Dosage: 56 MG/M2, PER CHEMO REGIM
     Route: 042
     Dates: end: 20171026
  22. DEXAMETHASONE. [Suspect]
     Active Substance: DEXAMETHASONE
     Dosage: 20 MG, PER CHEMO REGIM
     Route: 048
     Dates: start: 20171026
  23. ALPRAZOLAN [Concomitant]
     Active Substance: ALPRAZOLAM
     Indication: PROPHYLAXIS
     Dosage: 0.5 MG, QD
     Route: 048
     Dates: start: 20150505
  24. ACYCLOVIR. [Concomitant]
     Active Substance: ACYCLOVIR
     Indication: PROPHYLAXIS
     Dosage: 200 MG, BID
     Route: 048
     Dates: start: 20140130

REACTIONS (2)
  - Cellulitis [Recovered/Resolved]
  - Sepsis [Fatal]

NARRATIVE: CASE EVENT DATE: 20171030
